FAERS Safety Report 9734556 (Version 2)
Quarter: 2013Q4

REPORT INFORMATION
  Report Type: Spontaneous
  Country: US (occurrence: US)
  Receive Date: 20131206
  Receipt Date: 20131210
  Transmission Date: 20140711
  Serious: Yes (Hospitalization)
  Sender: FDA-Public Use
  Company Number: US-ROCHE-1310340

PATIENT
  Age: 56 Year
  Sex: Female
  Weight: 65.83 kg

DRUGS (11)
  1. PEGASYS [Suspect]
     Indication: HEPATITIS C
     Route: 058
     Dates: start: 20131004, end: 20131115
  2. INCIVEK [Suspect]
     Indication: HEPATITIS C
     Dosage: 2 TABS BY MOUTH 3 TIMES DAILY
     Route: 048
     Dates: start: 20131115
  3. INCIVEK [Suspect]
     Route: 048
     Dates: start: 20131004, end: 20131115
  4. RIBASPHERE [Suspect]
     Indication: HEPATITIS C
     Dosage: 3 PO QAM AND 2 PO QPM
     Route: 048
     Dates: start: 20131004, end: 20131031
  5. RIBASPHERE [Suspect]
     Dosage: 2 TABS EVERY MORNING 3 TABS EVERY EVENING
     Route: 048
     Dates: start: 20131031, end: 20131115
  6. MORPHINE [Concomitant]
  7. PRILOSEC [Concomitant]
  8. COMPAZINE SUPPOSITORIES [Concomitant]
  9. LEVOTHYROXINE [Concomitant]
     Route: 065
  10. LEVOTHYROXINE [Concomitant]
     Route: 065
  11. OMEPRAZOL [Concomitant]

REACTIONS (5)
  - Anaemia [Unknown]
  - Aphagia [Unknown]
  - Nausea [Unknown]
  - Vomiting [Unknown]
  - Fatigue [Unknown]
